FAERS Safety Report 22654655 (Version 1)
Quarter: 2023Q2

REPORT INFORMATION
  Report Type: Spontaneous
  Country: US (occurrence: None)
  Receive Date: 20230628
  Receipt Date: 20230628
  Transmission Date: 20230722
  Serious: No
  Sender: FDA-Public Use
  Company Number: None

PATIENT
  Age: 56 Year
  Sex: Female
  Weight: 85.5 kg

DRUGS (3)
  1. DRONABINOL [Suspect]
     Active Substance: DRONABINOL
     Indication: Arthralgia
     Route: 048
     Dates: start: 20230625, end: 20230625
  2. PRAMIPEXOLE [Concomitant]
     Active Substance: PRAMIPEXOLE
  3. ADVIL [Concomitant]
     Active Substance: IBUPROFEN

REACTIONS (6)
  - Feeling abnormal [None]
  - Speech disorder [None]
  - Hypoacusis [None]
  - Hyperacusis [None]
  - Diplopia [None]
  - Memory impairment [None]

NARRATIVE: CASE EVENT DATE: 20230626
